FAERS Safety Report 5219602-8 (Version None)
Quarter: 2007Q1

REPORT INFORMATION
  Report Type: 
  Country: None (occurrence: None)
  Receive Date: 20070125
  Receipt Date: 20070110
  Transmission Date: 20070707
  Serious: Yes (Other)
  Sender: FDA-Public Use
  Company Number: US-SHR-US-2006-029547

PATIENT
  Age: 52 Year
  Sex: Female
  Weight: 63 kg

DRUGS (18)
  1. BETASERON [Suspect]
     Indication: RELAPSING-REMITTING MULTIPLE SCLEROSIS
     Dosage: 8 MIU, EVERY 2D
     Route: 058
     Dates: start: 20050324, end: 20060101
  2. BETASERON [Suspect]
     Dosage: INCR. DOSE TO 5 OUT OF 7 DAYS
     Route: 058
     Dates: start: 20060101, end: 20060101
  3. BETASERON [Suspect]
     Dosage: 8 MIU, 5X/WEEK
     Route: 058
     Dates: start: 20060901, end: 20060918
  4. IMMUNOGLOBULINS [Suspect]
     Dosage: UNK, 2 DOSES
     Route: 042
  5. SOLGAR VM-75 [Concomitant]
     Dosage: 1 TAB(S), 1X/DAY
  6. MAGNESIUM [Concomitant]
     Dosage: 450 MG, 2X/DAY
  7. EPA XTRA FISH OIL [Concomitant]
     Dosage: 2000 MG, 1X/DAY
  8. COQ10 [Concomitant]
     Dosage: 100 MG, 1X/DAY
  9. TIZANIDINE HCL [Concomitant]
     Dosage: 4 MG, 2X/DAY (EQ 4 MG BASE)
  10. CALCIUM WITH VITAMIN D [Concomitant]
     Dosage: 500 MG, 2X/DAY
  11. FOLIC ACID [Concomitant]
     Dosage: 400 A?G, 2X/DAY
  12. LIPITOR [Concomitant]
     Dosage: 80 MG, 1X/DAY (EQ 80 MG BASE)
  13. AMBIEN [Concomitant]
     Dosage: 5 MG, AS REQ'D
  14. GABAPENTIN [Concomitant]
     Indication: PAIN
     Dosage: 300 MG, 3X/DAY
  15. GABAPENTIN [Concomitant]
     Dosage: 300 MG, UNK
     Route: 048
  16. WELLBUTRIN [Concomitant]
     Indication: DEPRESSION
     Dosage: 300 MG, 1X/DAY
     Route: 048
  17. DETROL LA [Concomitant]
     Indication: BLADDER DISORDER
     Dosage: 4 MG, 1X/DAY
     Route: 048
  18. ZANAFLEX [Concomitant]
     Dosage: 4 MG, 3X/DAY
     Route: 048

REACTIONS (4)
  - ADVERSE DRUG REACTION [None]
  - IDIOPATHIC THROMBOCYTOPENIC PURPURA [None]
  - INCREASED TENDENCY TO BRUISE [None]
  - MULTIPLE SCLEROSIS [None]
